FAERS Safety Report 6274338-X (Version None)
Quarter: 2009Q3

REPORT INFORMATION
  Report Type: 
  Country: None (occurrence: None)
  Receive Date: 20090716
  Receipt Date: 20090709
  Transmission Date: 20100115
  Serious: Yes (Other)
  Sender: FDA-Public Use
  Company Number: ADR6662009 (ARROW LOG NO:2008AG0162

PATIENT
  Age: 69 Year
  Sex: Male

DRUGS (1)
  1. PRAVASTATIN [Suspect]

REACTIONS (1)
  - INTERSTITIAL LUNG DISEASE [None]
